FAERS Safety Report 15113882 (Version 3)
Quarter: 2018Q4

REPORT INFORMATION
  Report Type: Spontaneous
  Country: DE (occurrence: DE)
  Receive Date: 20180706
  Receipt Date: 20181010
  Transmission Date: 20190204
  Serious: Yes (Hospitalization, Other)
  Sender: FDA-Public Use
  Company Number: DE-AUROBINDO-AUR-APL-2018-034086

PATIENT
  Age: 80 Year
  Sex: Female

DRUGS (15)
  1. RISPERIDONE. [Interacting]
     Active Substance: RISPERIDONE
     Dosage: 1 MILLIGRAM, DAILY
     Route: 048
     Dates: start: 20180213, end: 20180221
  2. MIRTAZAPIN [Concomitant]
     Active Substance: MIRTAZAPINE
     Indication: PRODUCT USED FOR UNKNOWN INDICATION
     Dosage: DOSAGE FORM: UNSPECIFIED
     Route: 048
     Dates: start: 20180213, end: 20180221
  3. BRIMODIN                           /01341102/ [Concomitant]
     Indication: PRODUCT USED FOR UNKNOWN INDICATION
     Dosage: 2 GTT, DAILY
     Route: 047
     Dates: end: 20180221
  4. SIMVASTATIN. [Concomitant]
     Active Substance: SIMVASTATIN
     Indication: PRODUCT USED FOR UNKNOWN INDICATION
     Dosage: DOSAGE FORM: UNSPECIFIED
     Route: 048
     Dates: end: 20180221
  5. RISPERIDONE. [Suspect]
     Active Substance: RISPERIDONE
     Indication: PRODUCT USED FOR UNKNOWN INDICATION
     Dosage: 0 TO 2.5 MG
     Route: 048
     Dates: start: 20161201
  6. ENALAPRIL [Concomitant]
     Active Substance: ENALAPRIL
     Indication: PRODUCT USED FOR UNKNOWN INDICATION
     Dosage: DOSAGE FORM: UNSPECIFIED
     Route: 048
     Dates: start: 20180221, end: 20180221
  7. DORZOCOMP VISION [Concomitant]
     Active Substance: DORZOLAMIDE HYDROCHLORIDE\TIMOLOL MALEATE
     Indication: PRODUCT USED FOR UNKNOWN INDICATION
     Dosage: 2 GTT, DAILY (2 X 1 GTT)
     Route: 047
     Dates: end: 20180221
  8. AUGENTROPFEN [Concomitant]
     Indication: PRODUCT USED FOR UNKNOWN INDICATION
     Dosage: DOSAGE FORM: UNSPECIFIED
     Route: 065
     Dates: end: 20180221
  9. PIPAMPERON [Suspect]
     Active Substance: PIPAMPERONE HYDROCHLORIDE
     Indication: PRODUCT USED FOR UNKNOWN INDICATION
     Dosage: DOSAGE FORM: UNSPECIFIED
     Route: 048
     Dates: start: 20180213, end: 20180221
  10. RISPERIDONE. [Interacting]
     Active Substance: RISPERIDONE
     Dosage: 0.5 MILLIGRAM, DAILY
     Route: 048
     Dates: start: 20180222, end: 20180225
  11. ENALAPRIL [Concomitant]
     Active Substance: ENALAPRIL
     Dosage: DOSAGE FORM: UNSPECIFIED
     Route: 048
     Dates: end: 20180220
  12. PREDNIFLUID [Concomitant]
     Indication: PRODUCT USED FOR UNKNOWN INDICATION
     Dosage: 2 GTT
     Route: 047
     Dates: end: 20180221
  13. ACTRAPID [Concomitant]
     Active Substance: INSULIN HUMAN
     Indication: DIABETES MELLITUS
     Dosage: SEIT MONATEN; B.A.W.; NACH SCHEMA IE
     Route: 058
     Dates: end: 20180221
  14. ELIQUIS [Concomitant]
     Active Substance: APIXABAN
     Indication: PRODUCT USED FOR UNKNOWN INDICATION
     Dosage: DOSAGE FORM: UNSPECIFIED
     Route: 048
     Dates: end: 20180221
  15. LANTUS [Concomitant]
     Active Substance: INSULIN GLARGINE
     Indication: DIABETES MELLITUS
     Dosage: DOSAGE FORM: UNSPECIFIED, 20 IE
     Route: 058
     Dates: end: 20180221

REACTIONS (2)
  - Rabbit syndrome [Recovering/Resolving]
  - Drug interaction [Recovering/Resolving]

NARRATIVE: CASE EVENT DATE: 20180221
